FAERS Safety Report 16795475 (Version 1)
Quarter: 2019Q3

REPORT INFORMATION
  Report Type: Spontaneous
  Country: US (occurrence: US)
  Receive Date: 20190911
  Receipt Date: 20190911
  Transmission Date: 20191005
  Serious: Yes (Hospitalization)
  Sender: FDA-Public Use
  Company Number: US-JNJFOC-20190908820

PATIENT
  Age: 64 Year
  Sex: Male

DRUGS (1)
  1. INVOKANA [Suspect]
     Active Substance: CANAGLIFLOZIN
     Indication: TYPE 2 DIABETES MELLITUS
     Route: 048
     Dates: start: 20161129, end: 20170411

REACTIONS (5)
  - Foot amputation [Unknown]
  - Coagulopathy [Unknown]
  - Gangrene [Unknown]
  - Osteomyelitis acute [Unknown]
  - Diabetic foot infection [Unknown]

NARRATIVE: CASE EVENT DATE: 201707
